FAERS Safety Report 23870411 (Version 1)
Quarter: 2024Q2

REPORT INFORMATION
  Report Type: Spontaneous
  Country: US (occurrence: US)
  Receive Date: 20240518
  Receipt Date: 20240518
  Transmission Date: 20240716
  Serious: No
  Sender: FDA-Public Use
  Company Number: US-GLANDPHARMA-US-2024GLNSPO00130

PATIENT

DRUGS (4)
  1. METOPROLOL TARTRATE [Suspect]
     Active Substance: METOPROLOL TARTRATE
     Indication: Atrial fibrillation
     Route: 065
  2. TIKOSYN [Concomitant]
     Active Substance: DOFETILIDE
     Indication: Atrial fibrillation
     Route: 048
  3. COREG [Concomitant]
     Active Substance: CARVEDILOL
     Indication: Atrial fibrillation
     Route: 065
  4. FLECAINIDE [Concomitant]
     Active Substance: FLECAINIDE
     Indication: Atrial fibrillation
     Route: 065

REACTIONS (1)
  - Drug ineffective for unapproved indication [Unknown]
